FAERS Safety Report 9079313 (Version 2)
Quarter: 2013Q2

REPORT INFORMATION
  Report Type: Spontaneous
  Country: NL (occurrence: NL)
  Receive Date: 20130215
  Receipt Date: 20130529
  Transmission Date: 20140414
  Serious: Yes (Hospitalization)
  Sender: FDA-Public Use
  Company Number: NL-MERCK-1302NLD003322

PATIENT
  Age: 77 Year
  Sex: Male

DRUGS (3)
  1. SINEMET-125 [Suspect]
     Indication: PARKINSON^S DISEASE
     Dosage: 1 DF, QID
     Route: 048
     Dates: end: 20121231
  2. SINEMET-125 [Suspect]
     Dosage: 1 DF, QID
     Route: 048
     Dates: start: 20130110, end: 20130205
  3. SINEMET-125 [Suspect]
     Dosage: 1 DF, QID
     Route: 048
     Dates: start: 20130206

REACTIONS (9)
  - Shock [Recovered/Resolved]
  - Delirium [Recovered/Resolved]
  - Adverse event [Recovered/Resolved]
  - Parkinson^s disease [Recovering/Resolving]
  - Hallucination [Recovering/Resolving]
  - Drug ineffective [Unknown]
  - Incorrect dose administered [Unknown]
  - Inappropriate schedule of drug administration [Unknown]
  - Medication error [Unknown]
